FAERS Safety Report 9860089 (Version 15)
Quarter: 2015Q1

REPORT INFORMATION
  Report Type: Report from Study
  Country: CA (occurrence: CA)
  Receive Date: 20140131
  Receipt Date: 20150309
  Transmission Date: 20150721
  Serious: Yes (Other)
  Sender: FDA-Public Use
  Company Number: CA-ROCHE-1235661

PATIENT
  Age: 65 Year
  Sex: Female
  Weight: 88 kg

DRUGS (10)
  1. ACTEMRA [Suspect]
     Active Substance: TOCILIZUMAB
     Indication: RHEUMATOID ARTHRITIS
     Route: 042
     Dates: start: 20130503
  2. ACTEMRA [Suspect]
     Active Substance: TOCILIZUMAB
     Route: 042
     Dates: start: 20130606
  3. ACTEMRA [Suspect]
     Active Substance: TOCILIZUMAB
     Route: 042
     Dates: start: 20140509
  4. PMS-SULFASALAZINE [Concomitant]
  5. CLONAZEPAM. [Concomitant]
     Active Substance: CLONAZEPAM
  6. TYLENOL WITH CODEINE [Concomitant]
     Active Substance: ACETAMINOPHEN\CODEINE PHOSPHATE
  7. ACTEMRA [Suspect]
     Active Substance: TOCILIZUMAB
     Route: 042
     Dates: start: 20150205
  8. APO-FOLIC [Concomitant]
  9. PREDNISONE. [Concomitant]
     Active Substance: PREDNISONE
  10. ACTEMRA [Suspect]
     Active Substance: TOCILIZUMAB
     Route: 042
     Dates: start: 20131212

REACTIONS (17)
  - Deafness [Not Recovered/Not Resolved]
  - Somnolence [Not Recovered/Not Resolved]
  - Blood pressure increased [Unknown]
  - Arthralgia [Recovering/Resolving]
  - Malaise [Not Recovered/Not Resolved]
  - Musculoskeletal stiffness [Recovering/Resolving]
  - Nasopharyngitis [Not Recovered/Not Resolved]
  - Ear infection [Unknown]
  - Back pain [Unknown]
  - Palpitations [Unknown]
  - Infusion related reaction [Unknown]
  - Fatigue [Not Recovered/Not Resolved]
  - Weight increased [Unknown]
  - Abdominal discomfort [Unknown]
  - Cough [Recovering/Resolving]
  - Weight fluctuation [Unknown]
  - Dizziness [Unknown]

NARRATIVE: CASE EVENT DATE: 20130607
